FAERS Safety Report 12716476 (Version 1)
Quarter: 2016Q3

REPORT INFORMATION
  Report Type: Other
  Country: US (occurrence: US)
  Receive Date: 20160906
  Receipt Date: 20160906
  Transmission Date: 20161109
  Serious: No
  Sender: FDA-Public Use
  Company Number: US-COL_16440_2014

PATIENT
  Age: 66 Year
  Sex: Male

DRUGS (1)
  1. COLGATE TOTAL CLEAN MINT [Suspect]
     Active Substance: SODIUM FLUORIDE\TRICLOSAN
     Indication: PRODUCT USED FOR UNKNOWN INDICATION
     Dosage: COVERING THE WHOLE HEAD OF HIS TOOTHBRUSH/TWICE/
     Route: 048
     Dates: start: 20140623, end: 20140623

REACTIONS (3)
  - Abdominal discomfort [Recovered/Resolved]
  - Product odour abnormal [Unknown]
  - Expired product administered [Unknown]

NARRATIVE: CASE EVENT DATE: 20140623
